FAERS Safety Report 6710575-5 (Version None)
Quarter: 2010Q2

REPORT INFORMATION
  Report Type: 
  Country: None (occurrence: None)
  Receive Date: 20100430
  Receipt Date: 20100414
  Transmission Date: 20101027
  Serious: Yes (Hospitalization)
  Sender: FDA-Public Use
  Company Number: DSA_43038_2010

PATIENT
  Age: 80 Year
  Sex: Female

DRUGS (3)
  1. MASDIL (MASDIL - DILTIAZEM HYDROCHLORIDE) 60 MG (NOT SPECIFIED) [Suspect]
     Indication: ATRIAL FIBRILLATION
     Dosage: (180 MG QD ORAL)
     Route: 048
     Dates: start: 20080101, end: 20090312
  2. ALDACTONE [Suspect]
     Indication: HYPERTENSION
     Dosage: (100 MG QD ORAL)
     Route: 048
     Dates: start: 20080901, end: 20090312
  3. SEGURIL [Concomitant]

REACTIONS (2)
  - ORTHOSTATIC HYPOTENSION [None]
  - RENAL FAILURE [None]
